FAERS Safety Report 14920365 (Version 1)
Quarter: 2018Q2

REPORT INFORMATION
  Report Type: Spontaneous
  Country: US (occurrence: US)
  Receive Date: 20180521
  Receipt Date: 20180521
  Transmission Date: 20180711
  Serious: Yes (Other)
  Sender: FDA-Public Use
  Company Number: US-PFIZER INC-2018201603

PATIENT
  Age: 71 Year
  Sex: Female

DRUGS (1)
  1. XELJANZ XR [Suspect]
     Active Substance: TOFACITINIB CITRATE
     Dosage: 11 MG, UNK

REACTIONS (9)
  - Jaundice [Unknown]
  - Transaminases increased [Unknown]
  - Weight decreased [Unknown]
  - Tremor [Unknown]
  - Musculoskeletal stiffness [Unknown]
  - Decreased appetite [Unknown]
  - Pain [Unknown]
  - Gastrointestinal disorder [Unknown]
  - Blood lactate dehydrogenase increased [Unknown]
